FAERS Safety Report 23232577 (Version 1)
Quarter: 2023Q4

REPORT INFORMATION
  Report Type: Spontaneous
  Country: TR (occurrence: TR)
  Receive Date: 20231128
  Receipt Date: 20231128
  Transmission Date: 20240109
  Serious: Yes (Hospitalization)
  Sender: FDA-Public Use
  Company Number: TR-NOVOPROD-1142130

PATIENT
  Sex: Male
  Weight: 3.75 kg

DRUGS (2)
  1. LEVEMIR [Suspect]
     Active Substance: INSULIN DETEMIR
     Indication: Gestational diabetes
     Dosage: 8 IU, QD
     Route: 064
     Dates: end: 20230914
  2. FERROUS GLYCINE SULFATE [Concomitant]
     Active Substance: FERROUS GLYCINE SULFATE
     Indication: Pregnancy
     Dosage: 100 MG, QD
     Route: 064
     Dates: end: 20230914

REACTIONS (3)
  - Respiratory disorder [Recovered/Resolved]
  - Thyroid hormones increased [Not Recovered/Not Resolved]
  - Foetal exposure during pregnancy [Recovered/Resolved]

NARRATIVE: CASE EVENT DATE: 20230914
